FAERS Safety Report 6084717-1 (Version None)
Quarter: 2009Q1

REPORT INFORMATION
  Report Type: 
  Country: None (occurrence: None)
  Receive Date: 20090217
  Receipt Date: 20090212
  Transmission Date: 20090719
  Serious: Yes (Other)
  Sender: FDA-Public Use
  Company Number: S08-CAN-01736-01

PATIENT
  Age: 26 Year
  Sex: Female

DRUGS (6)
  1. ESCITALOPRAM [Suspect]
     Indication: DEPRESSION
     Dosage: ORAL
     Route: 048
     Dates: start: 20071201, end: 20080426
  2. FLOVENT (FLUTICASONE PROPIONATE) (FLUTICASONE PROPIONATE) [Concomitant]
  3. SALBUTAMOL (SALBUTAMOL) (SALBUTAMOL) [Concomitant]
  4. ADVAIR HFA [Concomitant]
  5. VITAMINS (NOS) [Concomitant]
  6. ZOLOFT [Concomitant]

REACTIONS (4)
  - CAESAREAN SECTION [None]
  - DRUG EXPOSURE DURING PREGNANCY [None]
  - PREMATURE RUPTURE OF MEMBRANES [None]
  - TYPE 2 DIABETES MELLITUS [None]
